FAERS Safety Report 4813909-1 (Version None)
Quarter: 2005Q4

REPORT INFORMATION
  Report Type: 
  Country: None (occurrence: None)
  Receive Date: 20051028
  Receipt Date: 20031107
  Transmission Date: 20060501
  Serious: No
  Sender: FDA-Public Use
  Company Number: US-GLAXOSMITHKLINE-A0438852A

PATIENT
  Age: 66 Year
  Sex: Male

DRUGS (20)
  1. SEREVENT [Suspect]
     Indication: ASTHMA
     Dosage: 1PUFF TWICE PER DAY
     Route: 055
     Dates: start: 20030708, end: 20040711
  2. PROVENTIL [Concomitant]
  3. ALBUTEROL [Concomitant]
     Route: 055
  4. NORCO [Concomitant]
  5. UNKNOWN MEDICATION [Concomitant]
  6. DIOVAN [Concomitant]
  7. LIPITOR [Concomitant]
  8. CELEBREX [Concomitant]
  9. PRILOSEC [Concomitant]
  10. BRETHINE [Concomitant]
  11. PREDNISONE [Concomitant]
  12. CARDURA [Concomitant]
  13. LASIX [Concomitant]
  14. AMBIEN [Concomitant]
  15. FLOMAX [Concomitant]
  16. METHADONE [Concomitant]
  17. PERCOCET [Concomitant]
  18. FLOVENT [Concomitant]
  19. ASPIRIN [Concomitant]
  20. NALEX [Concomitant]
     Route: 065

REACTIONS (7)
  - ASTHMA [None]
  - BRONCHITIS ACUTE [None]
  - CONDITION AGGRAVATED [None]
  - DRUG INEFFECTIVE [None]
  - DYSPNOEA [None]
  - GLOSSODYNIA [None]
  - TONGUE ULCERATION [None]
